FAERS Safety Report 6454712-9 (Version None)
Quarter: 2009Q4

REPORT INFORMATION
  Report Type: 
  Country: None (occurrence: None)
  Receive Date: 20091118
  Receipt Date: 20091104
  Transmission Date: 20100525
  Serious: Yes (Other)
  Sender: FDA-Public Use
  Company Number: 20090518

PATIENT
  Age: 50 Year
  Sex: Female

DRUGS (2)
  1. VENOFER [Suspect]
     Indication: IRON DEFICIENCY ANAEMIA
     Dosage: 300 MG IN 250 ML NS OVER 2 HRS INTRAVENOUS
     Route: 042
     Dates: start: 20091026, end: 20091027
  2. VENOFER [Suspect]
     Indication: IRON DEFICIENCY ANAEMIA
     Dosage: 300 MG IN 250 ML NS OVER 2 HRS INTRAVENOUS
     Route: 042
     Dates: start: 20091026, end: 20091027

REACTIONS (6)
  - DIZZINESS [None]
  - HYPOTENSION [None]
  - NAUSEA [None]
  - SYNCOPE [None]
  - TENOSYNOVITIS [None]
  - VOMITING [None]
